FAERS Safety Report 11945350 (Version 3)
Quarter: 2016Q2

REPORT INFORMATION
  Report Type: Report from Study
  Country: US (occurrence: US)
  Receive Date: 20160125
  Receipt Date: 20160405
  Transmission Date: 20160815
  Serious: Yes (Hospitalization, Other)
  Sender: FDA-Public Use
  Company Number: US-BAYER-2015-439283

PATIENT
  Age: 61 Year
  Sex: Male

DRUGS (3)
  1. NEXAVAR [Suspect]
     Active Substance: SORAFENIB
     Indication: HEPATIC CANCER
     Dosage: 400 MG, QD
     Route: 048
     Dates: start: 20150908
  2. NEXAVAR [Suspect]
     Active Substance: SORAFENIB
     Indication: HEPATIC CANCER
     Dosage: 400 MG, QD
     Route: 048
  3. NEXAVAR [Suspect]
     Active Substance: SORAFENIB
     Indication: HEPATIC CANCER
     Dosage: 400 MG, BID
     Route: 048
     Dates: start: 20150904, end: 201509

REACTIONS (10)
  - Hospitalisation [None]
  - Blister [None]
  - Abnormal behaviour [Not Recovered/Not Resolved]
  - Peripheral swelling [None]
  - Abdominal pain upper [None]
  - Muscle spasms [None]
  - Oral mucosal blistering [None]
  - Seizure [Not Recovered/Not Resolved]
  - Gait disturbance [None]
  - Mouth swelling [None]

NARRATIVE: CASE EVENT DATE: 201601
